FAERS Safety Report 6031242-X (Version None)
Quarter: 2008Q4

REPORT INFORMATION
  Report Type: 
  Country: None (occurrence: None)
  Receive Date: 20081224
  Receipt Date: 20081118
  Transmission Date: 20090506
  Serious: No
  Sender: FDA-Public Use
  Company Number: 2008PV037152

PATIENT
  Age: 69 Year
  Sex: Male

DRUGS (3)
  1. SYMLINPEN 120 (PRAMLINTIDE ACETATE) PEN-INJECTOR (1.0 MG/ML) [Suspect]
     Indication: TYPE 2 DIABETES MELLITUS
     Dosage: 120 MCG;BID;SC ; 60 MCG;BID;SC
     Route: 058
     Dates: start: 20080901, end: 20080907
  2. SYMLINPEN 120 (PRAMLINTIDE ACETATE) PEN-INJECTOR (1.0 MG/ML) [Suspect]
     Indication: TYPE 2 DIABETES MELLITUS
     Dosage: 120 MCG;BID;SC ; 60 MCG;BID;SC
     Route: 058
     Dates: start: 20080907
  3. HUMALOG MIX 75/25 [Concomitant]

REACTIONS (2)
  - DIARRHOEA [None]
  - NAUSEA [None]
